FAERS Safety Report 8884281 (Version 1)
Quarter: 2012Q4

REPORT INFORMATION
  Report Type: 
  Country: US (occurrence: US)
  Receive Date: 20121102
  Receipt Date: 20121102
  Transmission Date: 20130627
  Serious: No
  Sender: FDA-Public Use
  Company Number: US-ASTRAZENECA-2012SE19849

PATIENT
  Age: 54 Year
  Sex: Male

DRUGS (3)
  1. CRESTOR [Suspect]
     Route: 048
  2. MOTRIN [Concomitant]
  3. TRICOR [Concomitant]

REACTIONS (5)
  - Hypertension [Unknown]
  - Chest pain [Unknown]
  - Diabetes mellitus [Unknown]
  - Blood cholesterol increased [Unknown]
  - Intentional drug misuse [Unknown]
